FAERS Safety Report 8511763-8 (Version None)
Quarter: 2012Q3

REPORT INFORMATION
  Report Type: 
  Country: None (occurrence: None)
  Receive Date: 20120711
  Receipt Date: 20120711
  Transmission Date: 20120928
  Serious: No
  Sender: FDA-Public Use
  Company Number: None

PATIENT
  Age: 45 Year
  Sex: Female

DRUGS (1)
  1. CREST PRO-HEALTH INVIGORATING CLEAN MULTI-PROTECTION RINSE (ANTI GINGI [Suspect]
     Dates: start: 20120622

REACTIONS (6)
  - CHEMICAL INJURY [None]
  - ORAL DISCOMFORT [None]
  - ORAL MUCOSAL EXFOLIATION [None]
  - ORAL MUCOSAL BLISTERING [None]
  - BURNS SECOND DEGREE [None]
  - DRUG HYPERSENSITIVITY [None]
